FAERS Safety Report 5962427-6 (Version None)
Quarter: 2008Q4

REPORT INFORMATION
  Report Type: 
  Country: None (occurrence: None)
  Receive Date: 20081121
  Receipt Date: 20081114
  Transmission Date: 20090506
  Serious: Yes (Other)
  Sender: FDA-Public Use
  Company Number: GB-MERCK-0811GBR00062

PATIENT
  Age: 70 Year
  Sex: Male
  Weight: 108 kg

DRUGS (12)
  1. ZOCOR [Suspect]
     Indication: HYPERCHOLESTEROLAEMIA
     Route: 048
     Dates: start: 20060530
  2. CANDESARTAN [Suspect]
     Indication: HYPERTENSION
     Route: 065
     Dates: start: 20080929
  3. DIPYRIDAMOLE [Suspect]
     Indication: THROMBOSIS PROPHYLAXIS
     Route: 065
     Dates: start: 20060626
  4. FELODIPINE [Suspect]
     Indication: HYPERTENSION
     Route: 065
     Dates: start: 20051222
  5. IPRATROPIUM BROMIDE [Suspect]
     Indication: ASTHMA
     Dates: start: 20050124
  6. FLUTICASONE PROPIONATE [Suspect]
     Indication: ASTHMA
     Dates: start: 20020901
  7. ALBUTEROL [Suspect]
     Indication: ASTHMA
  8. BECLOMETHASONE DIPROPIONATE [Concomitant]
     Dates: start: 20020423
  9. LORATADINE [Concomitant]
     Route: 065
     Dates: start: 20020426
  10. ACETAMINOPHEN [Concomitant]
     Route: 065
     Dates: start: 19991029
  11. TIOTROPIUM BROMIDE [Concomitant]
     Dates: start: 20061013
  12. ASPIRIN [Concomitant]
     Route: 065
     Dates: start: 20060628

REACTIONS (2)
  - ASTHMA [None]
  - FEELING ABNORMAL [None]
